FAERS Safety Report 12601911 (Version 1)
Quarter: 2016Q3

REPORT INFORMATION
  Report Type: Report from Study
  Country: CA (occurrence: CA)
  Receive Date: 20160728
  Receipt Date: 20160728
  Transmission Date: 20161109
  Serious: Yes (Other)
  Sender: FDA-Public Use
  Company Number: CA-JNJFOC-20160719459

PATIENT
  Age: 24 Year
  Sex: Female
  Weight: 47.7 kg

DRUGS (1)
  1. REMICADE [Suspect]
     Active Substance: INFLIXIMAB
     Indication: CROHN^S DISEASE
     Dosage: 30 INFUSIONS UP UNTIL NOW (AT THE TIME OF REPORT)
     Route: 042

REACTIONS (3)
  - Off label use [Unknown]
  - Lung infection [Unknown]
  - Product use issue [Unknown]

NARRATIVE: CASE EVENT DATE: 20160722
